FAERS Safety Report 5947518-8 (Version None)
Quarter: 2008Q4

REPORT INFORMATION
  Report Type: 
  Country: None (occurrence: None)
  Receive Date: 20081110
  Receipt Date: 20081031
  Transmission Date: 20090506
  Serious: Yes (Other)
  Sender: FDA-Public Use
  Company Number: PHHY2008ES26786

PATIENT
  Age: 86 Year
  Sex: Female

DRUGS (3)
  1. DIOVAN [Suspect]
     Dosage: UNK
     Route: 048
     Dates: end: 20080505
  2. DIOVAN HCT [Suspect]
     Dosage: UNK
     Route: 048
     Dates: end: 20080505
  3. SEGURIL [Suspect]
     Dosage: 40 MG DAILY
     Route: 048
     Dates: end: 20080505

REACTIONS (4)
  - ABDOMINAL PAIN UPPER [None]
  - GENERAL PHYSICAL HEALTH DETERIORATION [None]
  - HYPONATRAEMIA [None]
  - NAUSEA [None]
